FAERS Safety Report 6025823-7 (Version None)
Quarter: 2008Q4

REPORT INFORMATION
  Report Type: 
  Country: None (occurrence: None)
  Receive Date: 20081229
  Receipt Date: 20081217
  Transmission Date: 20090506
  Serious: Yes (Other)
  Sender: FDA-Public Use
  Company Number: TRP_06022_2008

PATIENT
  Age: 56 Year
  Sex: Male

DRUGS (2)
  1. RIBAVIRIN [Suspect]
     Indication: HEPATITIS C
     Dosage: 1200 MG/DAY
  2. PEG-INTRON [Suspect]
     Indication: HEPATITIS C
     Dosage: 150 UG 1X/WEEK

REACTIONS (3)
  - HAEMOLYTIC ANAEMIA [None]
  - NEUTROPENIA [None]
  - PORPHYRIA NON-ACUTE [None]
